FAERS Safety Report 8556436-0 (Version None)
Quarter: 2012Q3

REPORT INFORMATION
  Report Type: 
  Country: None (occurrence: None)
  Receive Date: 20120801
  Receipt Date: 20120723
  Transmission Date: 20120928
  Serious: Yes (Hospitalization)
  Sender: FDA-Public Use
  Company Number: JP-SANOFI-AVENTIS-2011SA059126

PATIENT
  Sex: Male
  Weight: 65.4 kg

DRUGS (23)
  1. CABAZITAXEL [Suspect]
     Route: 042
     Dates: start: 20110823, end: 20110823
  2. PREDNISOLONE [Suspect]
     Indication: PROSTATE CANCER METASTATIC
     Route: 048
     Dates: start: 20110802, end: 20110915
  3. GLYCERIN [Concomitant]
     Dates: start: 20110815, end: 20110908
  4. TIOTROPIUM BROMIDE [Concomitant]
     Route: 048
     Dates: start: 20070101
  5. OXETHAZINE [Concomitant]
     Route: 048
     Dates: start: 20050101
  6. RANITIDINE [Concomitant]
     Route: 041
     Dates: start: 20110823, end: 20110823
  7. CHLORPHENIRAMINE MALEATE [Concomitant]
     Indication: PREMEDICATION
     Route: 041
     Dates: start: 20110802, end: 20110802
  8. SITAGLIPTIN PHOSPHATE [Concomitant]
     Route: 048
     Dates: start: 20100101
  9. FAMOTIDINE [Concomitant]
     Route: 048
     Dates: start: 20110210
  10. RANITIDINE [Concomitant]
     Indication: PREMEDICATION
     Route: 041
     Dates: start: 20110802, end: 20110802
  11. CHLORPHENIRAMINE MALEATE [Concomitant]
     Route: 041
     Dates: start: 20110823, end: 20110823
  12. DEXAMETHASONE [Concomitant]
     Indication: PREMEDICATION
     Route: 041
     Dates: start: 20110802, end: 20110802
  13. CEFAZOLIN SODIUM [Concomitant]
     Route: 048
     Dates: start: 20110831, end: 20110906
  14. DIGOXIN [Concomitant]
     Route: 048
     Dates: start: 20080101
  15. LEVOFLOXACIN [Concomitant]
     Route: 048
     Dates: start: 20110831, end: 20110906
  16. KETOPROFEN [Concomitant]
     Dates: start: 20110807, end: 20110818
  17. URSODIOL [Concomitant]
     Route: 048
     Dates: start: 20050101
  18. CABAZITAXEL [Suspect]
     Indication: PROSTATE CANCER METASTATIC
     Route: 042
     Dates: start: 20110802, end: 20110802
  19. MAGNESIUM OXIDE [Concomitant]
     Route: 048
     Dates: start: 20110803
  20. AMBROXOL HYDROCHLORIDE [Concomitant]
     Route: 048
     Dates: start: 20070101
  21. HACHIAZULE [Concomitant]
     Route: 048
     Dates: start: 20110815, end: 20110908
  22. AZOSEMIDE [Concomitant]
     Route: 048
     Dates: start: 20090401
  23. DEXAMETHASONE [Concomitant]
     Route: 041
     Dates: start: 20110823, end: 20110823

REACTIONS (2)
  - PULMONARY EMBOLISM [None]
  - DEEP VEIN THROMBOSIS [None]
